FAERS Safety Report 10540401 (Version 1)
Quarter: 2014Q4

REPORT INFORMATION
  Report Type: Spontaneous
  Country: US (occurrence: US)
  Receive Date: 20141024
  Receipt Date: 20141024
  Transmission Date: 20150529
  Serious: Yes (Hospitalization)
  Sender: FDA-Public Use
  Company Number: US-UPSHER-SMITH LABORATORIES, INC.-13003397

PATIENT
  Age: 69 Year
  Sex: Male

DRUGS (7)
  1. UNSPECIFIED PROSTATE MEDICATION [Concomitant]
     Dosage: UNK
  2. UNSPECIFIED BLOOD PRESSURE MEDICATION [Concomitant]
     Dosage: UNK
  3. KLOR-CON M [Suspect]
     Active Substance: POTASSIUM CHLORIDE
     Indication: BLOOD POTASSIUM DECREASED
     Dosage: 1-3 TABLETS, QD
     Route: 048
     Dates: start: 1993, end: 201102
  4. PLAVIX [Concomitant]
     Active Substance: CLOPIDOGREL BISULFATE
     Dosage: UNK
  5. ASPIRIN. [Concomitant]
     Active Substance: ASPIRIN
     Dosage: UNK
  6. KLOR-CON M [Suspect]
     Active Substance: POTASSIUM CHLORIDE
     Dosage: 10 TABS IN AM AND 10 TABS IN PM
     Route: 048
     Dates: start: 201102, end: 20110220
  7. CYMBALTA [Concomitant]
     Active Substance: DULOXETINE HYDROCHLORIDE
     Dosage: UNK

REACTIONS (5)
  - Small intestine ulcer [Recovered/Resolved]
  - Dyspepsia [Recovered/Resolved]
  - Upper gastrointestinal haemorrhage [Recovered/Resolved]
  - Drug ineffective [Recovered/Resolved]
  - Melaena [Recovered/Resolved]

NARRATIVE: CASE EVENT DATE: 201102
